FAERS Safety Report 16443056 (Version 1)
Quarter: 2019Q2

REPORT INFORMATION
  Report Type: Spontaneous
  Country: US (occurrence: US)
  Receive Date: 20190617
  Receipt Date: 20190617
  Transmission Date: 20190711
  Serious: No
  Sender: FDA-Public Use
  Company Number: US-TOLMAR, INC.-TOLG20192281

PATIENT
  Sex: Female

DRUGS (1)
  1. CLOBETASOL PROPIONATE. [Suspect]
     Active Substance: CLOBETASOL PROPIONATE
     Indication: RASH PRURITIC
     Dosage: APPLY TO SCALP
     Route: 061
     Dates: start: 201906

REACTIONS (2)
  - Alopecia [Not Recovered/Not Resolved]
  - Product prescribing error [None]

NARRATIVE: CASE EVENT DATE: 201906
